FAERS Safety Report 7908824 (Version 5)
Quarter: 2013Q1

REPORT INFORMATION
  Report Type: Spontaneous
  Country: US (occurrence: US)
  Receive Date: 20110421
  Receipt Date: 20130227
  Transmission Date: 20140127
  Serious: Yes (Other)
  Sender: FDA-Public Use
  Company Number: US-ASTRAZENECA-2011SE21103

PATIENT
  Age: 62 Year
  Sex: Female
  Weight: 71.7 kg

DRUGS (12)
  1. NEXIUM [Suspect]
     Indication: VITAMIN D DEFICIENCY
     Route: 048
  2. ADVAIR DISKUS [Concomitant]
     Dosage: 250-50 MCG/DOSE, ONE PUFFS TWICE A DAY
     Route: 055
  3. ALBUTEROL [Concomitant]
     Dosage: AS NEEDED
  4. ERGOCALCIFEROL [Concomitant]
     Dosage: 50000 UNITS CAPSULE, ONE CAPSULE WEEKLY FOR 12 WEEKS
     Route: 048
  5. LEVOTHYROXINE SODIUM [Concomitant]
     Route: 048
  6. LYRICA [Concomitant]
     Route: 048
  7. NUCYNTA ER [Concomitant]
     Route: 048
  8. OXYCONTIN [Concomitant]
     Route: 048
  9. PREDNISONE [Concomitant]
     Route: 048
  10. RYTHMOL SR [Concomitant]
     Route: 048
  11. SPIRIVA HANDIHALER [Concomitant]
     Dosage: INHALE CONTENT OF CAPSULE ONCE DAY
     Route: 055
  12. VALIUM [Concomitant]
     Route: 048

REACTIONS (8)
  - Post procedural hypothyroidism [Unknown]
  - Eye disorder [Unknown]
  - Heart rate increased [Unknown]
  - Cardiac fibrillation [Unknown]
  - Asthma [Unknown]
  - Chronic obstructive pulmonary disease [Unknown]
  - Atrial fibrillation [Unknown]
  - Off label use [Unknown]
